FAERS Safety Report 9894227 (Version 2)
Quarter: 2014Q1

REPORT INFORMATION
  Report Type: Spontaneous
  Country: US (occurrence: US)
  Receive Date: 20140213
  Receipt Date: 20140213
  Transmission Date: 20141002
  Serious: Yes (Death, Hospitalization)
  Sender: FDA-Public Use
  Company Number: US-GLAXOSMITHKLINE-A0790042A

PATIENT
  Age: 51 Year
  Sex: Male

DRUGS (1)
  1. AVANDAMET [Suspect]
     Indication: BLOOD GLUCOSE INCREASED
     Dosage: 2TAB PER DAY
     Dates: start: 200510, end: 20051129

REACTIONS (11)
  - Pulmonary embolism [Fatal]
  - Malignant hypertension [Fatal]
  - Peripheral vascular disorder [Fatal]
  - Diabetes mellitus inadequate control [Fatal]
  - Vision blurred [Unknown]
  - Swelling [Unknown]
  - Depression [Unknown]
  - Hypoglycaemic coma [Unknown]
  - Dyspnoea [Unknown]
  - Asthenia [Unknown]
  - Macular oedema [Unknown]
